FAERS Safety Report 10280160 (Version 1)
Quarter: 2014Q3

REPORT INFORMATION
  Report Type: Spontaneous
  Country: US (occurrence: None)
  Receive Date: 20140701
  Receipt Date: 20140701
  Transmission Date: 20150326
  Serious: No
  Sender: FDA-Public Use
  Company Number: None

PATIENT
  Age: 52 Year
  Sex: Female
  Weight: 68.95 kg

DRUGS (1)
  1. METRONIDAZOLE. [Suspect]
     Active Substance: METRONIDAZOLE
     Indication: VAGINAL INFECTION
     Dosage: 1 PILL TWICE DAILY TAKEN BY MOUTH
     Route: 048
     Dates: start: 20140627, end: 20140628

REACTIONS (10)
  - Erythema [None]
  - Myalgia [None]
  - Insomnia [None]
  - Nausea [None]
  - Pain [None]
  - Muscle tightness [None]
  - Discomfort [None]
  - Rash [None]
  - Oropharyngeal pain [None]
  - Irritability [None]

NARRATIVE: CASE EVENT DATE: 20140628
